FAERS Safety Report 6593897-0 (Version None)
Quarter: 2010Q1

REPORT INFORMATION
  Report Type: 
  Country: None (occurrence: None)
  Receive Date: 20100222
  Receipt Date: 20100209
  Transmission Date: 20100710
  Serious: Yes (Hospitalization, Other)
  Sender: FDA-Public Use
  Company Number: PHHY2010US00833

PATIENT
  Sex: Female
  Weight: 50 kg

DRUGS (22)
  1. RECLAST [Suspect]
     Indication: OSTEOPOROSIS
     Dosage: 5 MG, UNK
     Route: 042
     Dates: start: 20091231, end: 20091231
  2. LIDOCAINE [Concomitant]
     Route: 061
  3. VICODIN [Concomitant]
     Dosage: 5\500 MG THRICE DAILY
     Route: 048
     Dates: start: 20091231
  4. DILTIAZEM HCL [Concomitant]
     Dosage: 240 MG, QD
     Route: 048
     Dates: start: 20091231
  5. DIOVAN [Concomitant]
     Dosage: 320 MG, QD
     Route: 048
     Dates: start: 20091231
  6. LASIX [Concomitant]
     Dosage: 40 MG, BID
     Route: 048
     Dates: start: 20091231
  7. ASPIRIN [Concomitant]
     Dosage: 81 MG, QD
     Route: 048
     Dates: start: 20091231
  8. DIGOXIN [Concomitant]
     Dosage: 0.125 MG, QD
     Route: 048
     Dates: start: 20091231
  9. TEKTURNA [Concomitant]
     Dosage: 300 MG, QD
     Route: 048
     Dates: start: 20091231
  10. COREG [Concomitant]
     Dosage: 25 MG, BID
     Route: 048
     Dates: start: 20091231
  11. IRON [Concomitant]
     Dosage: UNK
     Route: 048
     Dates: start: 20091231
  12. KLOR-CON [Concomitant]
     Dosage: 10 MG, BID
     Route: 048
     Dates: start: 20091231
  13. VITAMIN B-12 [Concomitant]
     Dosage: 500 MG, QD
     Route: 048
     Dates: start: 20091231
  14. CENTRUM SILVER [Concomitant]
     Dosage: UNK
     Route: 048
     Dates: start: 20091231
  15. CALTRATE 600 [Concomitant]
     Dosage: UNK
     Route: 048
     Dates: start: 20091231
  16. COUMADIN [Concomitant]
     Dosage: ADJUSTED AS NEEDED
     Route: 048
     Dates: start: 20091231
  17. ZOCOR [Concomitant]
     Dosage: 40 MG, HS
     Route: 048
     Dates: start: 20091231
  18. XANAX [Concomitant]
     Dosage: 0.25 MG, HS
     Route: 048
     Dates: start: 20091231
  19. TEMAZEPAM [Concomitant]
     Dosage: 30 MG, HS
     Route: 048
     Dates: start: 20091231
  20. PREVACID [Concomitant]
     Dosage: UNK
     Route: 048
     Dates: start: 20091231
  21. COLACE [Concomitant]
     Dosage: UNK
     Route: 048
     Dates: start: 20091231
  22. SENOKOT [Concomitant]
     Dosage: UNK
     Route: 048
     Dates: start: 20091231

REACTIONS (6)
  - BLOOD PRESSURE INCREASED [None]
  - DISORIENTATION [None]
  - HEADACHE [None]
  - HEART RATE IRREGULAR [None]
  - PALPITATIONS [None]
  - SENSATION OF PRESSURE [None]
